FAERS Safety Report 7597781-5 (Version None)
Quarter: 2011Q3

REPORT INFORMATION
  Report Type: 
  Country: None (occurrence: None)
  Receive Date: 20110708
  Receipt Date: 20110704
  Transmission Date: 20111222
  Serious: Yes (Death, Life-Threatening, Disabling, Other)
  Sender: FDA-Public Use
  Company Number: JP-SANOFI-AVENTIS-2011SA039183

PATIENT
  Age: 60 Year
  Sex: Male

DRUGS (7)
  1. TS-1 [Suspect]
     Route: 048
     Dates: start: 20110316, end: 20110329
  2. VOLTAREN [Concomitant]
     Dates: start: 20101106
  3. OXALIPLATIN [Suspect]
     Indication: LARGE INTESTINE CARCINOMA
     Route: 041
     Dates: start: 20100707, end: 20101027
  4. AVASTIN [Suspect]
     Indication: LARGE INTESTINE CARCINOMA
     Route: 041
     Dates: start: 20100707, end: 20110331
  5. AVASTIN [Suspect]
     Route: 041
  6. IRINOTECAN HCL [Suspect]
     Route: 042
     Dates: start: 20110316, end: 20110316
  7. XELODA [Suspect]
     Indication: LARGE INTESTINE CARCINOMA
     Route: 048
     Dates: start: 20100707, end: 20110302

REACTIONS (9)
  - NEUTROPHIL COUNT DECREASED [None]
  - INFECTIOUS PERITONITIS [None]
  - POSTOPERATIVE WOUND COMPLICATION [None]
  - MULTI-ORGAN FAILURE [None]
  - JAUNDICE [None]
  - PYREXIA [None]
  - SHOCK [None]
  - ABDOMINAL PAIN [None]
  - CARDIO-RESPIRATORY ARREST [None]
